FAERS Safety Report 14961761 (Version 1)
Quarter: 2018Q2

REPORT INFORMATION
  Report Type: Spontaneous
  Country: FR (occurrence: FR)
  Receive Date: 20180601
  Receipt Date: 20180601
  Transmission Date: 20180711
  Serious: Yes (Death)
  Sender: FDA-Public Use
  Company Number: FR-TEVA-2018-FR-898032

PATIENT
  Age: 54 Year
  Sex: Male
  Weight: 54 kg

DRUGS (23)
  1. FORTUM 2 G POWDER FOR SOLUTION FOR INJECTION (IV) [Suspect]
     Active Substance: CEFTAZIDIME
     Indication: INFECTION
     Route: 042
     Dates: start: 20180131, end: 20180202
  2. CATAPRESSAN [Concomitant]
     Active Substance: CLONIDINE
     Route: 042
     Dates: start: 20180206, end: 20180212
  3. ATARAX [Concomitant]
     Active Substance: HYDROXYZINE HYDROCHLORIDE
     Route: 048
     Dates: start: 20180212, end: 20180214
  4. FLAGYL [Suspect]
     Active Substance: METRONIDAZOLE\METRONIDAZOLE HYDROCHLORIDE
     Indication: INFECTION
     Route: 042
     Dates: start: 20180120, end: 20180126
  5. LASILIX [Concomitant]
     Active Substance: FUROSEMIDE
     Route: 042
     Dates: start: 20180130
  6. CARDENSIEL [Concomitant]
     Active Substance: BISOPROLOL FUMARATE
     Route: 048
     Dates: start: 20180206, end: 20180226
  7. TRIFLUCAN 2 MG / ML SOLUTION FOR INFUSION [Suspect]
     Active Substance: FLUCONAZOLE
     Indication: INFECTION
     Route: 042
     Dates: start: 20180207, end: 20180213
  8. SUFENTANIL [Concomitant]
     Active Substance: SUFENTANIL
     Route: 042
     Dates: start: 20180120
  9. INEXIUM [Concomitant]
     Active Substance: ESOMEPRAZOLE
     Route: 042
  10. COLIMYCINE [Suspect]
     Active Substance: COLISTIMETHATE SODIUM
     Indication: INFECTION
     Route: 065
     Dates: start: 20180211, end: 20180226
  11. CIFLOX 200 MG / 100 ML SOLUTION FOR INJECTION FOR INFUSION (IV) [Suspect]
     Active Substance: CIPROFLOXACIN
     Indication: INFECTION
     Route: 015
     Dates: start: 20180211, end: 20180226
  12. RAMIPRIL. [Concomitant]
     Active Substance: RAMIPRIL
     Route: 048
     Dates: start: 20180206, end: 20180226
  13. CANCIDAS [Suspect]
     Active Substance: CASPOFUNGIN ACETATE
     Indication: INFECTION
     Route: 042
     Dates: start: 20180202, end: 20180206
  14. ROCEPHINE [Concomitant]
     Active Substance: CEFTRIAXONE SODIUM
     Route: 042
     Dates: start: 20180120, end: 20180129
  15. ATROVENT [Concomitant]
     Active Substance: IPRATROPIUM BROMIDE
     Route: 055
     Dates: start: 20180128
  16. EUPRESSYL [Concomitant]
     Active Substance: URAPIDIL
     Route: 042
     Dates: start: 20180202
  17. VANCOMYCIN [Suspect]
     Active Substance: VANCOMYCIN
     Route: 042
     Dates: start: 20180130, end: 20180202
  18. AMIKACINE [Suspect]
     Active Substance: AMIKACIN
     Indication: INFECTION
     Route: 042
     Dates: start: 20180211, end: 20180217
  19. AXEPIM 2 G POWDER FOR PARENTERAL USE [Suspect]
     Active Substance: CEFEPIME HYDROCHLORIDE
     Indication: INFECTION
     Route: 042
     Dates: start: 20180129, end: 20180201
  20. PERFALGAN [Concomitant]
     Active Substance: ACETAMINOPHEN
     Route: 042
     Dates: start: 20180123
  21. TIENAM [Suspect]
     Active Substance: CILASTATIN SODIUM\IMIPENEM
     Indication: INFECTION
     Route: 042
     Dates: start: 20180201, end: 20180211
  22. LOVENOX [Concomitant]
     Active Substance: ENOXAPARIN SODIUM
     Dosage: 1 DOSAGE FORMS DAILY;
     Route: 058
  23. INSULINE [Concomitant]
     Active Substance: INSULIN NOS
     Route: 065
     Dates: start: 20180120

REACTIONS (1)
  - Toxic epidermal necrolysis [Fatal]

NARRATIVE: CASE EVENT DATE: 201802
